FAERS Safety Report 6187392-0 (Version None)
Quarter: 2009Q2

REPORT INFORMATION
  Report Type: 
  Country: None (occurrence: None)
  Receive Date: 20090512
  Receipt Date: 20090507
  Transmission Date: 20091009
  Serious: Yes (Other)
  Sender: FDA-Public Use
  Company Number: B0573374A

PATIENT
  Sex: Male

DRUGS (2)
  1. VALTREX [Suspect]
     Indication: DRUG USE FOR UNKNOWN INDICATION
     Dosage: 1500MG PER DAY
     Route: 048
  2. INSULIN [Concomitant]
     Route: 058

REACTIONS (5)
  - DYSARTHRIA [None]
  - GAIT DISTURBANCE [None]
  - HALLUCINATION [None]
  - HALLUCINATION, AUDITORY [None]
  - SUICIDAL IDEATION [None]
